FAERS Safety Report 8853957 (Version 1)
Quarter: 2012Q4

REPORT INFORMATION
  Report Type: 
  Country: US (occurrence: US)
  Receive Date: 20121022
  Receipt Date: 20121022
  Transmission Date: 20130627
  Serious: Yes (Hospitalization)
  Sender: FDA-Public Use
  Company Number: US-BAYER-2012-107011

PATIENT
  Age: 25 Year
  Sex: Female

DRUGS (18)
  1. OCELLA [Suspect]
  2. IBUPROFEN [Concomitant]
     Dosage: 600 mg, UNK
     Dates: start: 20101110
  3. HYDROCODONE W/ACETAMINOPHEN [Concomitant]
     Dosage: 5-500 mg
     Dates: start: 20101110
  4. CHLORHEXIDINE [Concomitant]
     Dosage: 12 %, rinse
     Dates: start: 20101110
  5. BUPROPION SR [Concomitant]
     Dosage: 200 mg, UNK
     Dates: start: 20101111
  6. PROVIGIL [Concomitant]
     Indication: NARCOLEPSY
     Dosage: 200 mg, UNK
     Dates: start: 20101122, end: 20101221
  7. BUSPIRONE [Concomitant]
     Dosage: 15 mg, UNK
     Dates: start: 20101213
  8. PROTONIX [Concomitant]
     Indication: GASTROOESOPHAGEAL REFLUX DISEASE
     Dosage: 40 mg, daily
  9. WELLBUTRIN [Concomitant]
     Dosage: 150 twice a day
  10. DOCUSATE [Concomitant]
     Dosage: 100 twice a day
  11. SENOKOT [Concomitant]
     Dosage: two tabs daily
  12. POLYETHYLENE GLYCOL [Concomitant]
     Dosage: daily
  13. OMEPRAZOLE [Concomitant]
     Indication: GASTROOESOPHAGEAL REFLUX DISEASE
     Dosage: 40 mg, daily
  14. DILAUDID [Concomitant]
  15. ZITHROMAX [Concomitant]
     Indication: PNEUMONIA
  16. ATIVAN [Concomitant]
     Indication: ANXIETY
  17. ATIVAN [Concomitant]
     Indication: DEPRESSION
  18. OXYCODONE [Concomitant]

REACTIONS (1)
  - Pulmonary embolism [None]
